FAERS Safety Report 10238182 (Version 4)
Quarter: 2014Q3

REPORT INFORMATION
  Report Type: Spontaneous
  Country: US (occurrence: US)
  Receive Date: 20140616
  Receipt Date: 20140731
  Transmission Date: 20150326
  Serious: Yes (Disabling, Other)
  Sender: FDA-Public Use
  Company Number: US-THROMBOGENICS NV-JET-2014-354

PATIENT
  Age: 68 Year
  Sex: Female

DRUGS (2)
  1. JETREA [Suspect]
     Active Substance: OCRIPLASMIN
     Indication: VITREOUS ADHESIONS
     Dosage: 0.125 MG, ONE TIME DOSE
     Route: 031
     Dates: start: 20130419, end: 20130419
  2. JETREA [Suspect]
     Active Substance: OCRIPLASMIN
     Indication: MACULAR FIBROSIS

REACTIONS (7)
  - Retinal detachment [Recovered/Resolved with Sequelae]
  - Vision blurred [Not Recovered/Not Resolved]
  - Retinal tear [Unknown]
  - Visual acuity reduced [Not Recovered/Not Resolved]
  - Metamorphopsia [Unknown]
  - Retinal injury [Unknown]
  - Subretinal fluid [Unknown]

NARRATIVE: CASE EVENT DATE: 20130420
